FAERS Safety Report 4528543-0 (Version None)
Quarter: 2004Q4

REPORT INFORMATION
  Report Type: 
  Country: None (occurrence: None)
  Receive Date: 20041216
  Receipt Date: 20041206
  Transmission Date: 20050328
  Serious: Yes (Congenital Anomaly)
  Sender: FDA-Public Use
  Company Number: FR-ABBOTT-04P-056-0282845-00

PATIENT
  Sex: Male

DRUGS (1)
  1. DEPAKENE [Suspect]
     Indication: DRUG EXPOSURE DURING PREGNANCY
     Route: 064

REACTIONS (9)
  - CEREBRAL VENTRICLE DILATATION [None]
  - COMMUNICATION DISORDER [None]
  - CONGENITAL MACROCEPHALY [None]
  - DEVELOPMENTAL COORDINATION DISORDER [None]
  - DRUG EXPOSURE DURING PREGNANCY [None]
  - FACIAL DYSMORPHISM [None]
  - HYPOKINESIA [None]
  - MENTAL RETARDATION SEVERITY UNSPECIFIED [None]
  - SOCIAL PROBLEM [None]
